FAERS Safety Report 21430112 (Version 7)
Quarter: 2023Q1

REPORT INFORMATION
  Report Type: Spontaneous
  Country: CA (occurrence: CA)
  Receive Date: 20221009
  Receipt Date: 20230202
  Transmission Date: 20230417
  Serious: Yes (Death, Disabling)
  Sender: FDA-Public Use
  Company Number: CA-ROCHE-3029892

PATIENT
  Age: 80 Year
  Sex: Male
  Weight: 69 kg

DRUGS (215)
  1. CEFTRIAXONE SODIUM [Suspect]
     Active Substance: CEFTRIAXONE SODIUM
     Indication: Bacterial infection
     Route: 042
  2. CEFTRIAXONE SODIUM [Suspect]
     Active Substance: CEFTRIAXONE SODIUM
     Route: 042
  3. CEFTRIAXONE SODIUM [Suspect]
     Active Substance: CEFTRIAXONE SODIUM
     Route: 042
  4. CEFTRIAXONE SODIUM [Suspect]
     Active Substance: CEFTRIAXONE SODIUM
     Dosage: UNK
     Route: 065
  5. OSELTAMIVIR [Suspect]
     Active Substance: OSELTAMIVIR
     Indication: Product used for unknown indication
     Dosage: UNK
     Route: 065
  6. CALCITRIOL [Suspect]
     Active Substance: CALCITRIOL
     Indication: Product used for unknown indication
     Route: 065
  7. CALCITRIOL [Suspect]
     Active Substance: CALCITRIOL
     Route: 065
  8. CALCITRIOL [Suspect]
     Active Substance: CALCITRIOL
     Route: 065
  9. CALCITRIOL [Suspect]
     Active Substance: CALCITRIOL
     Route: 065
  10. VITAMIN K1 [Suspect]
     Active Substance: PHYTONADIONE
     Indication: Vitamin supplementation
     Route: 042
  11. VITAMIN K1 [Suspect]
     Active Substance: PHYTONADIONE
     Indication: Product used for unknown indication
  12. CALCITRIOL [Suspect]
     Active Substance: CALCITRIOL
     Indication: Vitamin D
     Route: 048
  13. CALCITRIOL [Suspect]
     Active Substance: CALCITRIOL
     Route: 048
  14. CALCITRIOL [Suspect]
     Active Substance: CALCITRIOL
     Dosage: 500 MILLIGRAM, Q8HR
     Route: 048
  15. ALLOPURINOL [Suspect]
     Active Substance: ALLOPURINOL
     Indication: Blood uric acid increased
     Route: 048
  16. ALLOPURINOL [Suspect]
     Active Substance: ALLOPURINOL
     Indication: Off label use
     Route: 048
  17. ALLOPURINOL [Suspect]
     Active Substance: ALLOPURINOL
     Indication: Intentional product misuse
     Route: 048
  18. ALLOPURINOL [Suspect]
     Active Substance: ALLOPURINOL
     Route: 048
  19. ALLOPURINOL [Suspect]
     Active Substance: ALLOPURINOL
     Route: 048
  20. DARBEPOETIN ALFA [Suspect]
     Active Substance: DARBEPOETIN ALFA
     Indication: Anaemia
     Dosage: 10 MG, QOD
     Route: 065
  21. DARBEPOETIN ALFA [Suspect]
     Active Substance: DARBEPOETIN ALFA
     Dosage: 0.71 UG, QOD
     Route: 065
  22. PHYTONADIONE [Suspect]
     Active Substance: PHYTONADIONE
     Indication: Vitamin supplementation
     Dosage: 5 MILLIGRAM, QD
     Route: 042
  23. PHYTONADIONE [Suspect]
     Active Substance: PHYTONADIONE
     Indication: Off label use
     Route: 017
  24. PHYTONADIONE [Suspect]
     Active Substance: PHYTONADIONE
     Route: 042
  25. PHYTONADIONE [Suspect]
     Active Substance: PHYTONADIONE
     Dosage: 5 MILLIGRAM, PRN
     Route: 017
  26. DEXTROSE [Suspect]
     Active Substance: DEXTROSE
     Indication: Nutritional supplementation
     Route: 042
  27. DEXTROSE [Suspect]
     Active Substance: DEXTROSE
     Route: 042
  28. DEXTROSE [Suspect]
     Active Substance: DEXTROSE
     Route: 042
  29. DEXTROSE [Suspect]
     Active Substance: DEXTROSE
     Route: 042
  30. DEXTROSE [Suspect]
     Active Substance: DEXTROSE
     Dosage: 12.5 MILLIGRAM, PRN
     Route: 042
  31. DEXTROSE [Suspect]
     Active Substance: DEXTROSE
     Dosage: 12 GRAM, QD
     Route: 042
  32. DEXTROSE [Suspect]
     Active Substance: DEXTROSE
     Dosage: 12 GRAM, QD
     Route: 042
  33. DEXTROSE [Suspect]
     Active Substance: DEXTROSE
     Route: 065
  34. HEPARIN SODIUM [Suspect]
     Active Substance: HEPARIN SODIUM
     Indication: Anticoagulant therapy
     Route: 042
  35. HEPARIN SODIUM [Suspect]
     Active Substance: HEPARIN SODIUM
     Route: 042
  36. HEPARIN SODIUM [Suspect]
     Active Substance: HEPARIN SODIUM
     Route: 042
  37. HEPARIN SODIUM [Suspect]
     Active Substance: HEPARIN SODIUM
     Route: 017
  38. HEPARIN SODIUM [Suspect]
     Active Substance: HEPARIN SODIUM
     Dosage: 50 MILLILITER, QD
     Route: 065
  39. HEPARIN SODIUM [Suspect]
     Active Substance: HEPARIN SODIUM
     Dosage: 50 MILLILITER, PRN
     Route: 042
  40. HEPARIN SODIUM [Suspect]
     Active Substance: HEPARIN SODIUM
     Dosage: 50 MILLILITER, QD
     Route: 042
  41. HEPARIN SODIUM [Suspect]
     Active Substance: HEPARIN SODIUM
     Route: 042
  42. CEFTRIAXONE [Suspect]
     Active Substance: CEFTRIAXONE
     Indication: Bacterial infection
     Route: 042
  43. CEFTRIAXONE [Suspect]
     Active Substance: CEFTRIAXONE
     Indication: Off label use
     Route: 042
  44. CEFTRIAXONE [Suspect]
     Active Substance: CEFTRIAXONE
     Indication: Product used for unknown indication
  45. TAMIFLU [Suspect]
     Active Substance: OSELTAMIVIR PHOSPHATE
     Indication: Product used for unknown indication
     Route: 065
  46. ATROVENT [Concomitant]
     Active Substance: IPRATROPIUM BROMIDE
     Indication: Sleep disorder therapy
     Dosage: UNKNOWN
  47. ATROVENT [Concomitant]
     Active Substance: IPRATROPIUM BROMIDE
     Indication: Dyspnoea
     Dosage: UNK, Q6H
  48. ATROVENT [Concomitant]
     Active Substance: IPRATROPIUM BROMIDE
     Indication: Dyspnoea
     Dosage: UNK UNK, QID
  49. ATROVENT [Concomitant]
     Active Substance: IPRATROPIUM BROMIDE
     Indication: Sleep disorder therapy
     Dosage: UNK, Q8HR
  50. ATROVENT [Concomitant]
     Active Substance: IPRATROPIUM BROMIDE
     Indication: Product used for unknown indication
     Dosage: EVERY 6 HOURS
  51. ATROVENT [Concomitant]
     Active Substance: IPRATROPIUM BROMIDE
     Indication: Somnolence
     Dosage: UNK
  52. ATROVENT [Concomitant]
     Active Substance: IPRATROPIUM BROMIDE
     Indication: Dyspnoea
     Dosage: Q4D
  53. ATROVENT [Concomitant]
     Active Substance: IPRATROPIUM BROMIDE
     Indication: Off label use
     Dosage: UNKNOWN
  54. ATROVENT [Concomitant]
     Active Substance: IPRATROPIUM BROMIDE
     Dosage: UNK
  55. ATROVENT [Concomitant]
     Active Substance: IPRATROPIUM BROMIDE
     Dosage: UNK UNK, QID
  56. ATROVENT [Concomitant]
     Active Substance: IPRATROPIUM BROMIDE
     Dosage: UNK
  57. ATROVENT [Concomitant]
     Active Substance: IPRATROPIUM BROMIDE
     Dosage: 1 DF, Q6HR
  58. ATROVENT [Concomitant]
     Active Substance: IPRATROPIUM BROMIDE
     Dosage: UNK
  59. ATROVENT [Concomitant]
     Active Substance: IPRATROPIUM BROMIDE
     Dosage: UNK
  60. ATROVENT [Concomitant]
     Active Substance: IPRATROPIUM BROMIDE
     Dosage: UNK
  61. ATROVENT [Concomitant]
     Active Substance: IPRATROPIUM BROMIDE
     Dosage: UNK UNK, QID
  62. ATROVENT [Concomitant]
     Active Substance: IPRATROPIUM BROMIDE
     Dosage: UNK, Q6H
  63. ATROVENT [Concomitant]
     Active Substance: IPRATROPIUM BROMIDE
     Dosage: UNK UNK, QID
  64. ATROVENT [Concomitant]
     Active Substance: IPRATROPIUM BROMIDE
     Dosage: 4 UNK, QD
  65. ATROVENT [Concomitant]
     Active Substance: IPRATROPIUM BROMIDE
     Dosage: UNK, Q6HR
  66. ATROVENT [Concomitant]
     Active Substance: IPRATROPIUM BROMIDE
     Dosage: 4 EVERY 1 DAYS
  67. ATROVENT [Concomitant]
     Active Substance: IPRATROPIUM BROMIDE
     Dosage: UNK UNK, Q8HR
  68. ATROVENT [Concomitant]
     Active Substance: IPRATROPIUM BROMIDE
     Dosage: 1 DF, Q6HR
  69. ATROVENT [Concomitant]
     Active Substance: IPRATROPIUM BROMIDE
     Dosage: UNK, EVERY 4DAY (UNK, Q4D)
  70. ATROVENT [Concomitant]
     Active Substance: IPRATROPIUM BROMIDE
     Dosage: 1 DOSAGE FORM, EVERY 6HR (1 DOSAGE FORM, Q6HR)
  71. ATROVENT [Concomitant]
     Active Substance: IPRATROPIUM BROMIDE
     Dosage: 1 DOSAGE FORM, EVERY 6HR
  72. ATROVENT [Concomitant]
     Active Substance: IPRATROPIUM BROMIDE
     Dosage: 1 DF, Q8HR
  73. ATROVENT [Concomitant]
     Active Substance: IPRATROPIUM BROMIDE
     Dosage: UNK UNK, QID
  74. ATROVENT [Concomitant]
     Active Substance: IPRATROPIUM BROMIDE
     Dosage: UNK UNK, QD
  75. ATROVENT [Concomitant]
     Active Substance: IPRATROPIUM BROMIDE
     Dosage: UNK
  76. ATROVENT [Concomitant]
     Active Substance: IPRATROPIUM BROMIDE
     Dosage: 1 DOSAGE FORM, EVERY 8HR
  77. ATROVENT [Concomitant]
     Active Substance: IPRATROPIUM BROMIDE
     Dosage: UNK, 1 /DAY (UNK, QID)
  78. ATROVENT [Concomitant]
     Active Substance: IPRATROPIUM BROMIDE
     Dosage: UNK, EVERY 4DAY
  79. ATROVENT [Concomitant]
     Active Substance: IPRATROPIUM BROMIDE
     Dosage: UNK, EVERY 8HR (UNK, Q8HR)
  80. ATROVENT [Concomitant]
     Active Substance: IPRATROPIUM BROMIDE
     Dosage: UNK
  81. ATROVENT [Concomitant]
     Active Substance: IPRATROPIUM BROMIDE
     Dosage: UNK, Q4D
  82. ATROVENT [Concomitant]
     Active Substance: IPRATROPIUM BROMIDE
     Dosage: UNK UNK, QD
  83. SIMVASTATIN [Concomitant]
     Active Substance: SIMVASTATIN
     Indication: Blood cholesterol increased
     Dosage: 40 MILLIGRAM, 1 /DAY (40 MILLIGRAM, QD)
  84. POTASSIUM CHLORIDE [Concomitant]
     Active Substance: POTASSIUM CHLORIDE
     Indication: Constipation
     Dosage: 17 G, QD
  85. POTASSIUM CHLORIDE [Concomitant]
     Active Substance: POTASSIUM CHLORIDE
     Indication: Constipation
     Dosage: UNKNOWN
  86. POTASSIUM CHLORIDE [Concomitant]
     Active Substance: POTASSIUM CHLORIDE
     Indication: Product used for unknown indication
     Dosage: UNK
  87. POTASSIUM CHLORIDE [Concomitant]
     Active Substance: POTASSIUM CHLORIDE
     Dosage: UNK
  88. POTASSIUM CHLORIDE [Concomitant]
     Active Substance: POTASSIUM CHLORIDE
     Dosage: 17 MG, QD
  89. POTASSIUM CHLORIDE [Concomitant]
     Active Substance: POTASSIUM CHLORIDE
     Dosage: UNK
  90. POTASSIUM CHLORIDE [Concomitant]
     Active Substance: POTASSIUM CHLORIDE
     Dosage: 17 G, QD
  91. SODIUM PHOSPHATE, MONOBASIC [Concomitant]
     Active Substance: SODIUM PHOSPHATE, MONOBASIC
     Indication: Constipation
     Dosage: 133 ML, PRN
  92. SODIUM PHOSPHATE, MONOBASIC [Concomitant]
     Active Substance: SODIUM PHOSPHATE, MONOBASIC
     Indication: Constipation
     Dosage: 133 ML, PRN
  93. SODIUM PHOSPHATE, MONOBASIC [Concomitant]
     Active Substance: SODIUM PHOSPHATE, MONOBASIC
     Dosage: 133 MG
  94. SODIUM PHOSPHATE, MONOBASIC [Concomitant]
     Active Substance: SODIUM PHOSPHATE, MONOBASIC
     Dosage: 133 ML, PRN
  95. AMLODIPINE [Concomitant]
     Active Substance: AMLODIPINE BESYLATE
     Indication: Intentional product misuse
     Dosage: UNK
  96. AMLODIPINE [Concomitant]
     Active Substance: AMLODIPINE BESYLATE
     Indication: Analgesic therapy
     Dosage: UNK
  97. AMLODIPINE [Concomitant]
     Active Substance: AMLODIPINE BESYLATE
     Indication: Off label use
  98. HYDROMORPHONE [Concomitant]
     Active Substance: HYDROMORPHONE
     Indication: Analgesic therapy
     Dosage: 1 MILLIGRAM Q4HR
  99. HYDROMORPHONE [Concomitant]
     Active Substance: HYDROMORPHONE
     Indication: Product used for unknown indication
     Dosage: 6 MG, QID
  100. HYDROMORPHONE [Concomitant]
     Active Substance: HYDROMORPHONE
     Indication: Off label use
     Dosage: 6 MILLIGRAM FOUR TIMES PER DAY
  101. HYDROMORPHONE [Concomitant]
     Active Substance: HYDROMORPHONE
     Indication: Intentional product misuse
     Dosage: 24 MILLIGRAM, EVERY 4HR
  102. HYDROMORPHONE [Concomitant]
     Active Substance: HYDROMORPHONE
     Indication: Analgesic therapy
     Dosage: 1 MILLIGRAM, EVERY 4HR
  103. HYDROMORPHONE [Concomitant]
     Active Substance: HYDROMORPHONE
     Dosage: 6 MILLIGRAM, 6 EVERY 1 DAYS
  104. HYDROMORPHONE [Concomitant]
     Active Substance: HYDROMORPHONE
     Dosage: 1 MILLIGRAM, EVERY 6HR
  105. HYDROMORPHONE [Concomitant]
     Active Substance: HYDROMORPHONE
     Dosage: 4 MILLIGRAM, EVERY 4HR
  106. HYDROMORPHONE [Concomitant]
     Active Substance: HYDROMORPHONE
     Dosage: 6 MILLIGRAM, EVERY 4DAY (4 EVERY 1 DAYS)
  107. HYDROMORPHONE [Concomitant]
     Active Substance: HYDROMORPHONE
     Dosage: 6 MILLIGRAM, EVERY 4HR (1 EVERY 4 HOURS)
  108. HYDROMORPHONE [Concomitant]
     Active Substance: HYDROMORPHONE
     Dosage: 1 MILLIGRAM, EVERY 4DAY (4 EVERY 1 DAYS)
  109. HYDROMORPHONE [Concomitant]
     Active Substance: HYDROMORPHONE
     Dosage: 24 MILLIGRAM, EVERY 4DAY (4 EVERY 1 DAYS)
  110. HYDROMORPHONE [Concomitant]
     Active Substance: HYDROMORPHONE
     Dosage: 24 MILLIGRAM, EVERY 6HR (1 EVERY 6 HOURS)
  111. HYDROMORPHONE [Concomitant]
     Active Substance: HYDROMORPHONE
     Dosage: 6 MILLIGRAM, EVERY 6HR (1 EVERY 6 HOURS)
  112. HYDROMORPHONE [Concomitant]
     Active Substance: HYDROMORPHONE
     Dosage: 6 MILLIGRAM, 1 EVERY 5 HOURS
  113. BISACODYL [Concomitant]
     Active Substance: BISACODYL
     Indication: Constipation
     Dosage: 10 MG, PRN
  114. DALTEPARIN SODIUM [Concomitant]
     Active Substance: DALTEPARIN SODIUM
     Indication: Pulmonary embolism
     Dosage: UNK
  115. DALTEPARIN SODIUM [Concomitant]
     Active Substance: DALTEPARIN SODIUM
     Indication: Thrombosis
     Dosage: UNK
  116. DALTEPARIN SODIUM [Concomitant]
     Active Substance: DALTEPARIN SODIUM
     Indication: Pulmonary embolism
     Dosage: UNK
  117. DALTEPARIN SODIUM [Concomitant]
     Active Substance: DALTEPARIN SODIUM
     Indication: Thrombosis
     Dosage: UNK
  118. DALTEPARIN SODIUM [Concomitant]
     Active Substance: DALTEPARIN SODIUM
     Indication: Product used for unknown indication
     Dosage: UNK
  119. DALTEPARIN SODIUM [Concomitant]
     Active Substance: DALTEPARIN SODIUM
     Dosage: UNK
  120. DALTEPARIN SODIUM [Concomitant]
     Active Substance: DALTEPARIN SODIUM
     Dosage: 12.5 MILLIGRAM
  121. DALTEPARIN SODIUM [Concomitant]
     Active Substance: DALTEPARIN SODIUM
     Dosage: 12.5 MILLIGRAM
  122. DALTEPARIN SODIUM [Concomitant]
     Active Substance: DALTEPARIN SODIUM
     Dosage: UNK
  123. DALTEPARIN SODIUM [Concomitant]
     Active Substance: DALTEPARIN SODIUM
     Dosage: 2.5 MILLILITER
  124. DISODIUM HYDROGEN CITRATE [Concomitant]
     Active Substance: DISODIUM HYDROGEN CITRATE
     Indication: Thrombosis
     Dosage: 2.5 MILLILITER
  125. DISODIUM HYDROGEN CITRATE [Concomitant]
     Active Substance: DISODIUM HYDROGEN CITRATE
     Indication: Anticoagulant therapy
     Dosage: 2.5 ML, NECESSARY (4GM/100ML SOLUTION UNASSIGNED) ANTICOAGULANT
  126. AMLODIPINE MESYLATE [Concomitant]
     Active Substance: AMLODIPINE MESYLATE
     Indication: Off label use
     Dosage: 1 UNK, 1 /DAY
  127. VITAMIN D3 [Concomitant]
     Active Substance: CHOLECALCIFEROL
     Indication: Off label use
     Dosage: UNK
  128. DISODIUM HYDROGEN CITRATE [Concomitant]
     Active Substance: DISODIUM HYDROGEN CITRATE
     Indication: Thrombosis
     Dosage: UNKNOWN
  129. DISODIUM HYDROGEN CITRATE [Concomitant]
     Active Substance: DISODIUM HYDROGEN CITRATE
     Dosage: UNK
  130. DISODIUM HYDROGEN CITRATE [Concomitant]
     Active Substance: DISODIUM HYDROGEN CITRATE
     Dosage: 2.5 MILLILITER, AS NECESSARY
  131. RIBOFLAVIN 5^-PHOSPHATE SODIUM [Concomitant]
     Active Substance: RIBOFLAVIN 5^-PHOSPHATE SODIUM
     Indication: Constipation
     Dosage: UNK
  132. RIBOFLAVIN 5^-PHOSPHATE SODIUM [Concomitant]
     Active Substance: RIBOFLAVIN 5^-PHOSPHATE SODIUM
     Indication: Product used for unknown indication
     Dosage: 17 GRAM, 1 /DAY
  133. RIBOFLAVIN 5^-PHOSPHATE SODIUM [Concomitant]
     Active Substance: RIBOFLAVIN 5^-PHOSPHATE SODIUM
     Dosage: UNK
  134. INSULIN NOS [Concomitant]
     Active Substance: INSULIN NOS
     Indication: Diabetes mellitus
     Dosage: UNK
  135. BETA CAROTENE [Concomitant]
     Active Substance: BETA CAROTENE
     Indication: Nutritional supplementation
     Dosage: 12.5 GRAM
  136. BETA CAROTENE [Concomitant]
     Active Substance: BETA CAROTENE
     Indication: Product used for unknown indication
     Dosage: 12.5 INTERNATIONAL UNIT (AS REQUIRED)
  137. BETA CAROTENE [Concomitant]
     Active Substance: BETA CAROTENE
     Indication: Nutritional supplementation
     Dosage: UNK
  138. CALCIUM GLUCONATE [Concomitant]
     Active Substance: CALCIUM GLUCONATE
     Dosage: UNK
  139. RIBOFLAVIN 5^-PHOSPHATE SODIUM ANHYDROUS [Concomitant]
     Active Substance: RIBOFLAVIN 5^-PHOSPHATE SODIUM ANHYDROUS
     Dosage: 17 G, QD
  140. DEXTROSE [Concomitant]
     Active Substance: DEXTROSE
     Indication: Nutritional supplementation
     Dosage: 12.5 G, PRN
  141. DEXTROSE [Concomitant]
     Active Substance: DEXTROSE
     Indication: Nutritional supplementation
     Dosage: 12.5 G UNK
  142. DEXTROSE [Concomitant]
     Active Substance: DEXTROSE
     Indication: Intentional product misuse
     Dosage: 12.5 G, QD
  143. DEXTROSE [Concomitant]
     Active Substance: DEXTROSE
     Indication: Off label use
     Dosage: 12.5 G, PRN
  144. DEXTROSE [Concomitant]
     Active Substance: DEXTROSE
     Indication: Product used for unknown indication
     Dosage: 12.5 MG
  145. DEXTROSE [Concomitant]
     Active Substance: DEXTROSE
     Indication: Product used for unknown indication
     Dosage: 12 GRAM, 1 /DAY
  146. DEXTROSE [Concomitant]
     Active Substance: DEXTROSE
     Dosage: 12.5 G
  147. DEXTROSE [Concomitant]
     Active Substance: DEXTROSE
     Dosage: 12.5 G, QD
  148. DEXTROSE [Concomitant]
     Active Substance: DEXTROSE
     Dosage: 12.5 MG, QD (ONCE A DAY)
  149. DEXTROSE [Concomitant]
     Active Substance: DEXTROSE
     Dosage: 1.25 GRAM (NOT SPECIFIED)
  150. DEXTROSE [Concomitant]
     Active Substance: DEXTROSE
     Dosage: 1 DOSAGE FORM, 1 /DAY (1 EVERY 1 DAYS)
  151. DEXTROSE [Concomitant]
     Active Substance: DEXTROSE
     Dosage: 12.5 G, PRN
  152. DEXTROSE [Concomitant]
     Active Substance: DEXTROSE
     Dosage: 12.5 G, PRN
  153. DEXTROSE [Concomitant]
     Active Substance: DEXTROSE
     Dosage: 12.5 MILLIGRAM, AS NEEDED (12.5 GRAM, PRN)
  154. DEXTROSE [Concomitant]
     Active Substance: DEXTROSE
     Dosage: 12.5 G, PRN
  155. DEXTROSE [Concomitant]
     Active Substance: DEXTROSE
     Dosage: 12.5 MG, QD
  156. VASOPRESSIN [Concomitant]
     Active Substance: VASOPRESSIN
     Indication: Drug therapy
     Dosage: 50 ML, QD
  157. VASOPRESSIN [Concomitant]
     Active Substance: VASOPRESSIN
     Indication: Product used for unknown indication
     Dosage: UNKNOWN
  158. VASOPRESSIN [Concomitant]
     Active Substance: VASOPRESSIN
     Indication: Drug therapy
     Dosage: UNKNOWN
  159. VASOPRESSIN [Concomitant]
     Active Substance: VASOPRESSIN
     Indication: Product used for unknown indication
     Dosage: THERAPY START DATE ASKU, THERAPY END DATE ASKU
  160. VASOPRESSIN [Concomitant]
     Active Substance: VASOPRESSIN
     Dosage: UNKNOWN
  161. VASOPRESSIN [Concomitant]
     Active Substance: VASOPRESSIN
     Dosage: UNKNOWN
  162. VASOPRESSIN [Concomitant]
     Active Substance: VASOPRESSIN
     Dosage: UNKNOWN
  163. VASOPRESSIN [Concomitant]
     Active Substance: VASOPRESSIN
     Dosage: UNKNOWN
  164. VASOPRESSIN [Concomitant]
     Active Substance: VASOPRESSIN
     Dosage: UNKNOWN
  165. VASOPRESSIN [Concomitant]
     Active Substance: VASOPRESSIN
     Dosage: UNK
  166. VASOPRESSIN [Concomitant]
     Active Substance: VASOPRESSIN
     Dosage: 250 ML, QD
  167. VASOPRESSIN [Concomitant]
     Active Substance: VASOPRESSIN
     Dosage: UNK
  168. VASOPRESSIN [Concomitant]
     Active Substance: VASOPRESSIN
     Dosage: UNK
  169. VASOPRESSIN [Concomitant]
     Active Substance: VASOPRESSIN
     Dosage: 50 MILLILITER, ONCE A DAY
  170. VASOPRESSIN [Concomitant]
     Active Substance: VASOPRESSIN
     Dosage: 1 INTERNATIONAL UNIT, 1 /DAY
  171. VASOPRESSIN [Concomitant]
     Active Substance: VASOPRESSIN
     Dosage: 250 MILLILITER, QD (ONCE A DAY)
  172. VASOPRESSIN [Concomitant]
     Active Substance: VASOPRESSIN
     Dosage: UNKNOWN
  173. VASOPRESSIN [Concomitant]
     Active Substance: VASOPRESSIN
     Dosage: UNK
  174. PYRIDOXINE HYDROCHLORIDE [Concomitant]
     Active Substance: PYRIDOXINE HYDROCHLORIDE
     Indication: Vitamin supplementation
     Dosage: UNK UNK, QD
  175. PYRIDOXINE HYDROCHLORIDE [Concomitant]
     Active Substance: PYRIDOXINE HYDROCHLORIDE
     Indication: Vitamin supplementation
     Dosage: UNKNOWN
  176. PYRIDOXINE HYDROCHLORIDE [Concomitant]
     Active Substance: PYRIDOXINE HYDROCHLORIDE
     Indication: Off label use
     Dosage: UNK, QID
  177. PYRIDOXINE HYDROCHLORIDE [Concomitant]
     Active Substance: PYRIDOXINE HYDROCHLORIDE
     Indication: Constipation
     Dosage: UNK
  178. PYRIDOXINE HYDROCHLORIDE [Concomitant]
     Active Substance: PYRIDOXINE HYDROCHLORIDE
     Indication: Product used for unknown indication
     Dosage: 10 MG, PRN
  179. PYRIDOXINE HYDROCHLORIDE [Concomitant]
     Active Substance: PYRIDOXINE HYDROCHLORIDE
     Indication: Analgesic therapy
     Dosage: 1 INTERNATIONAL UNIT, 1 /DAY
  180. PYRIDOXINE HYDROCHLORIDE [Concomitant]
     Active Substance: PYRIDOXINE HYDROCHLORIDE
     Dosage: UNK UNK, QID
  181. PYRIDOXINE HYDROCHLORIDE [Concomitant]
     Active Substance: PYRIDOXINE HYDROCHLORIDE
     Dosage: UNK
  182. PYRIDOXINE HYDROCHLORIDE [Concomitant]
     Active Substance: PYRIDOXINE HYDROCHLORIDE
     Dosage: 4 UNK, QID
  183. PYRIDOXINE HYDROCHLORIDE [Concomitant]
     Active Substance: PYRIDOXINE HYDROCHLORIDE
     Dosage: 2 UNK
  184. PYRIDOXINE HYDROCHLORIDE [Concomitant]
     Active Substance: PYRIDOXINE HYDROCHLORIDE
     Dosage: 4 INTERNATIONAL UNIT, 1 /DAY
  185. PYRIDOXINE HYDROCHLORIDE [Concomitant]
     Active Substance: PYRIDOXINE HYDROCHLORIDE
     Dosage: UNK
  186. PYRIDOXINE HYDROCHLORIDE [Concomitant]
     Active Substance: PYRIDOXINE HYDROCHLORIDE
     Dosage: 10 MG, PRN
  187. PYRIDOXINE HYDROCHLORIDE [Concomitant]
     Active Substance: PYRIDOXINE HYDROCHLORIDE
     Dosage: UNK
  188. PYRIDOXINE HYDROCHLORIDE [Concomitant]
     Active Substance: PYRIDOXINE HYDROCHLORIDE
     Dosage: 4 INTERNATIONAL UNIT (4 PER EVERY 6 HOURS)
  189. PYRIDOXINE HYDROCHLORIDE [Concomitant]
     Active Substance: PYRIDOXINE HYDROCHLORIDE
     Dosage: 10 MG
  190. PYRIDOXINE HYDROCHLORIDE [Concomitant]
     Active Substance: PYRIDOXINE HYDROCHLORIDE
     Dosage: UNK
  191. PYRIDOXINE HYDROCHLORIDE [Concomitant]
     Active Substance: PYRIDOXINE HYDROCHLORIDE
     Dosage: UNK, CAPSULES
  192. PYRIDOXINE HYDROCHLORIDE [Concomitant]
     Active Substance: PYRIDOXINE HYDROCHLORIDE
     Dosage: UNK, EVERY 6HR (QID)
  193. PYRIDOXINE HYDROCHLORIDE [Concomitant]
     Active Substance: PYRIDOXINE HYDROCHLORIDE
     Dosage: UNK
  194. PYRIDOXINE HYDROCHLORIDE [Concomitant]
     Active Substance: PYRIDOXINE HYDROCHLORIDE
     Dosage: UNK, 1 /DAY (4 EVERY 1 DAYS)
  195. PYRIDOXINE HYDROCHLORIDE [Concomitant]
     Active Substance: PYRIDOXINE HYDROCHLORIDE
     Dosage: UNK UNK, QID
  196. PYRIDOXINE HYDROCHLORIDE [Concomitant]
     Active Substance: PYRIDOXINE HYDROCHLORIDE
     Dosage: UNK UNK, QD
  197. SIMVASTATIN [Concomitant]
     Active Substance: SIMVASTATIN
     Indication: Blood cholesterol increased
     Dosage: UNKNOWN
  198. SIMVASTATIN [Concomitant]
     Active Substance: SIMVASTATIN
     Indication: Vitamin supplementation
     Dosage: 40 MG, QD
  199. SIMVASTATIN [Concomitant]
     Active Substance: SIMVASTATIN
     Indication: Product used for unknown indication
     Dosage: 40 MG, QD
  200. SIMVASTATIN [Concomitant]
     Active Substance: SIMVASTATIN
     Indication: Off label use
     Dosage: 40 MG, QD
  201. SIMVASTATIN [Concomitant]
     Active Substance: SIMVASTATIN
     Indication: Blood cholesterol increased
     Dosage: 40 MG, QD
  202. SIMVASTATIN [Concomitant]
     Active Substance: SIMVASTATIN
     Indication: Intentional product misuse
     Dosage: UNK
  203. SIMVASTATIN [Concomitant]
     Active Substance: SIMVASTATIN
     Dosage: UNK
  204. SIMVASTATIN [Concomitant]
     Active Substance: SIMVASTATIN
     Dosage: 40 MG, QD (ONCE A DAY)
  205. BISMUTH SUBSALICYLATE [Concomitant]
     Active Substance: BISMUTH SUBSALICYLATE
     Dosage: 133 MILLILITER
  206. ALBUTEROL [Concomitant]
     Active Substance: ALBUTEROL
     Indication: Off label use
     Dosage: UNK, 4 /DAY (4 EVERY 1 DAYS)
  207. ALBUTEROL [Concomitant]
     Active Substance: ALBUTEROL
     Indication: Chronic obstructive pulmonary disease
     Dosage: 1 DOSAGE FORM, EVERY 6HR (1 EVERY 6 HOURS)
  208. ALBUTEROL [Concomitant]
     Active Substance: ALBUTEROL
     Indication: Intentional product misuse
     Dosage: 1 DOSAGE FORM
  209. ALBUTEROL [Concomitant]
     Active Substance: ALBUTEROL
     Indication: Chronic obstructive pulmonary disease
     Dosage: UNK UNK, QD
  210. ALBUTEROL [Concomitant]
     Active Substance: ALBUTEROL
     Dosage: UNK, (PER 6 HOURS)
  211. ALBUTEROL [Concomitant]
     Active Substance: ALBUTEROL
     Dosage: 1 DOSAGE FORM, Q6HR
  212. ALBUTEROL [Concomitant]
     Active Substance: ALBUTEROL
     Dosage: 4 DOSAGE FORM, QD
  213. ALBUTEROL [Concomitant]
     Active Substance: ALBUTEROL
     Dosage: 4 DOSAGE FORM, Q6HR
  214. ALBUTEROL [Concomitant]
     Active Substance: ALBUTEROL
     Dosage: 1 DOSAGE FORM QID
  215. ALBUTEROL [Concomitant]
     Active Substance: ALBUTEROL
     Dosage: UNK

REACTIONS (24)
  - Multiple organ dysfunction syndrome [Fatal]
  - Hyponatraemia [Fatal]
  - Ascites [Fatal]
  - Cardiogenic shock [Fatal]
  - Drug intolerance [Fatal]
  - Swelling [Fatal]
  - Stress [Fatal]
  - Nausea [Fatal]
  - Thrombosis [Fatal]
  - Abdominal pain [Fatal]
  - Abdominal distension [Fatal]
  - Constipation [Fatal]
  - Vomiting [Fatal]
  - Sepsis [Fatal]
  - Ventricular fibrillation [Fatal]
  - Appendicitis [Fatal]
  - Blood phosphorus increased [Fatal]
  - Hyperphosphataemia [Fatal]
  - General physical health deterioration [Fatal]
  - Appendicolith [Fatal]
  - Chronic obstructive pulmonary disease [Fatal]
  - Condition aggravated [Fatal]
  - Dry mouth [Fatal]
  - Somnolence [Fatal]
